FAERS Safety Report 25085863 (Version 1)
Quarter: 2025Q1

REPORT INFORMATION
  Report Type: Spontaneous
  Country: FR (occurrence: FR)
  Receive Date: 20250317
  Receipt Date: 20250317
  Transmission Date: 20250408
  Serious: Yes (Hospitalization)
  Sender: MYLAN
  Company Number: None

PATIENT
  Age: 51 Year
  Sex: Female
  Weight: 60.4 kg

DRUGS (12)
  1. DOXYCYCLINE [Suspect]
     Active Substance: DOXYCYCLINE
     Indication: Neurofibromatosis
     Dosage: 50 MILLIGRAM, QD (24 HOURS)
     Dates: start: 20250201, end: 20250210
  2. MEKINIST [Suspect]
     Active Substance: TRAMETINIB DIMETHYL SULFOXIDE
     Indication: Neurofibromatosis
     Dosage: 2 MILLIGRAM, QD (24 HOURS)
     Dates: start: 20250130, end: 20250213
  3. MARINOL [Concomitant]
     Active Substance: DRONABINOL
     Indication: Neurofibromatosis
     Dosage: 2.5 MILLIGRAM, Q6H
     Dates: start: 20250206
  4. LEVOCARNITINE [Concomitant]
     Active Substance: LEVOCARNITINE
     Indication: Product used for unknown indication
     Dosage: 1 DOSAGE FORM, QD
  5. MORPHINE SULFATE [Concomitant]
     Active Substance: MORPHINE SULFATE
     Indication: Analgesic intervention supportive therapy
     Dosage: 1 DOSAGE FORM, Q8H (+ 2 IF NEEDED)
  6. TIAPRIDE HYDROCHLORIDE [Concomitant]
     Active Substance: TIAPRIDE HYDROCHLORIDE
     Indication: Psychotic symptom
     Dosage: 50 MILLIGRAM, BID (Q12H)
  7. AMITRIPTYLINE HYDROCHLORIDE [Concomitant]
     Active Substance: AMITRIPTYLINE HYDROCHLORIDE
     Indication: Product used for unknown indication
     Dosage: 1 DOSAGE FORM, BID (12 HOURS)
  8. VALIUM [Concomitant]
     Active Substance: DIAZEPAM
     Indication: Product used for unknown indication
     Dosage: 1 DOSAGE FORM, Q8H
  9. INNOHEP [Concomitant]
     Active Substance: TINZAPARIN SODIUM
     Indication: Thrombosis prophylaxis
     Dosage: 175 INTERNATIONAL UNIT/KILOGRAM, QD
  10. POTASSIUM CHLORIDE [Concomitant]
     Active Substance: POTASSIUM CHLORIDE
     Indication: Hypokalaemia
     Dosage: 1 DOSAGE FORM, Q8H
  11. POLYETHYLENE GLYCOLS [Concomitant]
     Active Substance: POLYETHYLENE GLYCOLS
     Indication: Constipation
     Dosage: 2 DOSAGE FORM, QD
  12. NALOXEGOL OXALATE [Concomitant]
     Active Substance: NALOXEGOL OXALATE
     Indication: Constipation
     Dosage: 37.5 MILLIGRAM, QD
     Dates: start: 20250207, end: 20250222

REACTIONS (1)
  - Hepatic cytolysis [Recovering/Resolving]

NARRATIVE: CASE EVENT DATE: 20250206
